FAERS Safety Report 7969381-6 (Version None)
Quarter: 2011Q4

REPORT INFORMATION
  Report Type: 
  Country: None (occurrence: None)
  Receive Date: 20111211
  Receipt Date: 20111115
  Transmission Date: 20120403
  Serious: Yes (Hospitalization)
  Sender: FDA-Public Use
  Company Number: PHHO2011AU16565

PATIENT
  Sex: Male

DRUGS (14)
  1. EPOETIN ALFA [Concomitant]
     Indication: ANAEMIA
     Dosage: UNK
     Dates: start: 20110910
  2. TEMAZEPAM [Concomitant]
     Dosage: 10 MG, PRN
     Dates: start: 20110923
  3. PROGRAF [Suspect]
     Indication: RENAL TRANSPLANT
     Dosage: 12 MG, BID
     Route: 048
     Dates: start: 20110823
  4. INSULIN GLARGINE [Concomitant]
     Indication: DIABETES MELLITUS
     Dosage: UNK
     Dates: start: 20110830
  5. HUMALOG [Concomitant]
     Indication: DIABETES MELLITUS
     Dosage: UNK
     Dates: start: 20110902
  6. AMPHOTERICIN B [Concomitant]
     Indication: INFECTION PROPHYLAXIS
     Dosage: 10 MG, QD
     Route: 048
     Dates: start: 20110823
  7. MYFORTIC [Concomitant]
     Indication: RENAL TRANSPLANT
     Dosage: 1080 MG, UNK
     Route: 048
     Dates: start: 20110823
  8. LANTUS [Concomitant]
     Dosage: UNK
  9. BASILIXIMAB [Concomitant]
     Dosage: UNK
     Dates: start: 20110823
  10. PANTOPRAZOLE [Concomitant]
     Indication: REFLUX GASTRITIS
     Dosage: 40 MG, DAILY
     Route: 048
     Dates: start: 20110823
  11. CERTICAN [Suspect]
     Indication: RENAL TRANSPLANT
     Dosage: 2 MG, BID
     Route: 048
     Dates: start: 20111031, end: 20111102
  12. PREDNISOLONE [Concomitant]
     Indication: RENAL TRANSPLANT
     Dosage: UNK
     Route: 048
     Dates: start: 20110823, end: 20110923
  13. TRIMETHOPRIM [Concomitant]
     Indication: BACTERIAL INFECTION
     Dosage: 80 MG, UNK
     Route: 048
     Dates: start: 20110823
  14. NOVORAPID [Concomitant]
     Dosage: UNK

REACTIONS (2)
  - ESCHERICHIA URINARY TRACT INFECTION [None]
  - UROSEPSIS [None]
